FAERS Safety Report 14492106 (Version 4)
Quarter: 2018Q3

REPORT INFORMATION
  Report Type: Spontaneous
  Country: ES (occurrence: ES)
  Receive Date: 20180206
  Receipt Date: 20180706
  Transmission Date: 20181010
  Serious: Yes (Other)
  Sender: FDA-Public Use
  Company Number: ES-AMGEN-ESPSP2018013472

PATIENT
  Age: 68 Year
  Sex: Female
  Weight: 67 kg

DRUGS (4)
  1. HIDROFEROL [Concomitant]
     Active Substance: CALCIFEDIOL
     Dosage: UNK UNK, QMO
  2. PROLIA [Suspect]
     Active Substance: DENOSUMAB
     Indication: OSTEOPOROSIS
     Dosage: UNK
     Route: 065
     Dates: start: 2012
  3. CALCIUM [Concomitant]
     Active Substance: CALCIUM
     Dosage: UNK
  4. MICALDEOS [Concomitant]
     Dosage: 1 DF, QD (AFTER DINNER)

REACTIONS (14)
  - Lumbar spinal stenosis [Unknown]
  - Spinal compression fracture [Recovering/Resolving]
  - Dental care [Unknown]
  - Influenza [Recovered/Resolved]
  - Lymphocyte count abnormal [Recovering/Resolving]
  - Neutrophil count abnormal [Recovering/Resolving]
  - Eosinophil count abnormal [Recovering/Resolving]
  - Arthropathy [Recovering/Resolving]
  - Nasopharyngitis [Recovering/Resolving]
  - Cervical spinal stenosis [Recovering/Resolving]
  - Peripheral swelling [Unknown]
  - Cataract [Unknown]
  - Osteopenia [Recovering/Resolving]
  - Fatigue [Unknown]

NARRATIVE: CASE EVENT DATE: 2016
